FAERS Safety Report 24233539 (Version 1)
Quarter: 2024Q3

REPORT INFORMATION
  Report Type: Spontaneous
  Country: US (occurrence: US)
  Receive Date: 20240821
  Receipt Date: 20240821
  Transmission Date: 20241016
  Serious: No
  Sender: DERMAVANT SCIENCES
  Company Number: US-Dermavant-001243

PATIENT

DRUGS (1)
  1. VTAMA [Suspect]
     Active Substance: TAPINAROF

REACTIONS (1)
  - Contusion [Unknown]
